FAERS Safety Report 7476060-0 (Version None)
Quarter: 2011Q2

REPORT INFORMATION
  Report Type: 
  Country: None (occurrence: None)
  Receive Date: 20110512
  Receipt Date: 20110503
  Transmission Date: 20111010
  Serious: Yes (Death, Hospitalization)
  Sender: FDA-Public Use
  Company Number: FR-PFIZER INC-2010020523

PATIENT
  Age: 59 Year
  Sex: Female

DRUGS (7)
  1. ATORVASTATIN CALCIUM [Suspect]
     Dosage: 20 MG, 1X/DAY
     Route: 048
  2. CORDARONE [Suspect]
     Dosage: 200 MG, 1X/DAY
     Route: 048
  3. LEVOTHYROXINE SODIUM [Suspect]
     Dosage: 25 UG, 1X/DAY
     Route: 048
  4. NAVELBINE [Suspect]
     Dosage: 1 INJECTION MONTHLY
     Route: 042
     Dates: start: 20091221, end: 20091221
  5. NAVELBINE [Suspect]
     Dosage: 1 INJECTION MONTHLY
     Route: 042
     Dates: start: 20091124, end: 20091124
  6. FLECAINIDE ACETATE [Suspect]
     Dosage: 200 MG, 1X/DAY
     Route: 048
  7. LASIX [Suspect]
     Dosage: 40 MG, 1X/DAY
     Route: 048

REACTIONS (5)
  - OVARIAN CANCER METASTATIC [None]
  - FINE MOTOR DELAY [None]
  - MYOPATHY [None]
  - AREFLEXIA [None]
  - MUSCULAR WEAKNESS [None]
